FAERS Safety Report 6397231-0 (Version None)
Quarter: 2009Q4

REPORT INFORMATION
  Report Type: 
  Country: None (occurrence: None)
  Receive Date: 20091012
  Receipt Date: 20090930
  Transmission Date: 20100525
  Serious: Yes (Other)
  Sender: FDA-Public Use
  Company Number: US-BAYER-200913447GPV

PATIENT
  Age: 79 Year
  Sex: Female
  Weight: 60 kg

DRUGS (14)
  1. FLUDARA [Suspect]
     Indication: CHRONIC LYMPHOCYTIC LEUKAEMIA
     Route: 042
     Dates: start: 20080505, end: 20080509
  2. FLUDARA [Suspect]
     Route: 042
     Dates: start: 20080602, end: 20080606
  3. FLUDARA [Suspect]
     Route: 042
     Dates: start: 20080701, end: 20080705
  4. FLUDARA [Suspect]
     Route: 042
     Dates: start: 20080728, end: 20080801
  5. FLUDARA [Suspect]
     Route: 042
     Dates: start: 20080825, end: 20080829
  6. FLUDARA [Suspect]
     Route: 042
     Dates: start: 20080922, end: 20080926
  7. IRBESARTAN [Concomitant]
     Indication: HYPERTENSION
     Dates: start: 20000101
  8. TRIMETAZIDINE [Concomitant]
     Indication: HYPERTENSION
     Dates: start: 20000101
  9. GINGKO BILLOBA EXTRACT [Concomitant]
  10. CHLORAMBUCIL [Concomitant]
     Indication: CHRONIC LYMPHOCYTIC LEUKAEMIA
     Dates: start: 20040901, end: 20050201
  11. VALACYCLOVIR HCL [Concomitant]
     Dates: start: 20080512, end: 20081117
  12. BACTRIM DS [Concomitant]
     Dates: start: 20080519, end: 20081120
  13. CALCIUM FOLINATE [Concomitant]
     Dates: start: 20080520, end: 20081117
  14. AERIUS [Concomitant]

REACTIONS (1)
  - NEUROENDOCRINE CARCINOMA [None]
